FAERS Safety Report 17293377 (Version 1)
Quarter: 2020Q1

REPORT INFORMATION
  Report Type: Spontaneous
  Country: ID (occurrence: ID)
  Receive Date: 20200121
  Receipt Date: 20200121
  Transmission Date: 20200409
  Serious: Yes (Other)
  Sender: FDA-Public Use
  Company Number: ID-ALVOGEN-2020-ALVOGEN-102362

PATIENT
  Age: 26 Year
  Sex: Female

DRUGS (1)
  1. CLINDAMYCIN. [Suspect]
     Active Substance: CLINDAMYCIN
     Indication: ACNE
     Route: 048

REACTIONS (2)
  - Oesophageal ulcer [Recovering/Resolving]
  - Oesophagitis [Recovering/Resolving]
